FAERS Safety Report 5140493-8 (Version None)
Quarter: 2006Q4

REPORT INFORMATION
  Report Type: 
  Country: None (occurrence: None)
  Receive Date: 20061025
  Receipt Date: 20061025
  Transmission Date: 20070319
  Serious: Yes (Hospitalization)
  Sender: FDA-Public Use
  Company Number: None

PATIENT
  Age: 52 Year
  Sex: Female
  Weight: 43.0917 kg

DRUGS (6)
  1. BUSPIRONE HCL [Suspect]
     Indication: DYSPNOEA
     Dosage: 1 CAP HS X3, BID X    ORAL
     Route: 048
  2. PLACEBO [Suspect]
  3. CARBOPLATIN [Concomitant]
  4. TAXOL [Concomitant]
  5. LORTAB [Concomitant]
  6. PEPCID [Concomitant]

REACTIONS (1)
  - UNEVALUABLE EVENT [None]
